FAERS Safety Report 8823785 (Version 3)
Quarter: 2013Q3

REPORT INFORMATION
  Report Type: Spontaneous
  Country: DE (occurrence: DE)
  Receive Date: 20121003
  Receipt Date: 20130920
  Transmission Date: 20140515
  Serious: Yes (Hospitalization)
  Sender: FDA-Public Use
  Company Number: DE-B.I. PHARMACEUTICALS,INC./RIDGEFIELD-2012-DE-02288DE

PATIENT
  Age: 74 Year
  Sex: Female
  Weight: 55 kg

DRUGS (10)
  1. PRADAXA [Suspect]
     Indication: ATRIAL FIBRILLATION
     Dosage: 150 MG
     Dates: start: 20120806, end: 20120826
  2. PRADAXA [Suspect]
  3. BISOPROLOL [Concomitant]
     Dosage: 20 MG
  4. DIGIMERCK [Concomitant]
     Dosage: 0.07 NR
  5. XIPAMID [Concomitant]
     Dosage: 40 MG
  6. APPROVEL [Concomitant]
     Dosage: 150 MG
  7. SIMVASTATIN [Concomitant]
     Dosage: 40 MG
  8. GARBAPENTIN [Concomitant]
     Dosage: 600 MG
  9. INSULIN [Concomitant]
     Indication: TYPE 2 DIABETES MELLITUS
  10. RIVAROXABAN [Concomitant]

REACTIONS (3)
  - Intestinal haemorrhage [Recovered/Resolved]
  - Procedural complication [Recovered/Resolved]
  - Haematochezia [Recovered/Resolved]
